FAERS Safety Report 24888248 (Version 2)
Quarter: 2025Q1

REPORT INFORMATION
  Report Type: Report from Study
  Country: JP (occurrence: JP)
  Receive Date: 20250127
  Receipt Date: 20250220
  Transmission Date: 20250409
  Serious: Yes (Hospitalization)
  Sender: ASTELLAS
  Company Number: JP-ASTELLAS-2025-AER-002110

PATIENT
  Age: 77 Year
  Sex: Male

DRUGS (4)
  1. VYLOY [Suspect]
     Active Substance: ZOLBETUXIMAB-CLZB
     Indication: Gastric cancer
     Route: 042
     Dates: start: 20250107, end: 20250107
  2. PRIMPERAN [Concomitant]
     Active Substance: METOCLOPRAMIDE HYDROCHLORIDE
     Indication: Decreased appetite
     Route: 065
     Dates: start: 20250109, end: 20250115
  3. AMINO ACIDS\DEXTROSE\ELECTROLYTES NOS\VITAMINS [Concomitant]
     Active Substance: AMINO ACIDS\DEXTROSE\ELECTROLYTES NOS\VITAMINS
     Indication: Decreased appetite
     Route: 065
     Dates: start: 20250110, end: 20250120
  4. AMINO ACIDS\CARBOHYDRATES\MINERALS\SOYBEAN OIL\VITAMINS [Concomitant]
     Active Substance: AMINO ACIDS\CARBOHYDRATES\MINERALS\SOYBEAN OIL\VITAMINS
     Indication: Decreased appetite
     Route: 065
     Dates: start: 20250110, end: 20250122

REACTIONS (3)
  - Decreased appetite [Recovered/Resolved]
  - Weight decreased [Recovering/Resolving]
  - Dehydration [Recovered/Resolved]

NARRATIVE: CASE EVENT DATE: 20250107
